FAERS Safety Report 16711334 (Version 4)
Quarter: 2019Q4

REPORT INFORMATION
  Report Type: Spontaneous
  Country: US (occurrence: US)
  Receive Date: 20190816
  Receipt Date: 20191205
  Transmission Date: 20200122
  Serious: Yes (Other)
  Sender: FDA-Public Use
  Company Number: US-PFIZER INC-2019348999

PATIENT
  Age: 62 Year
  Sex: Female
  Weight: 52.15 kg

DRUGS (17)
  1. ALPRAZOLAM. [Suspect]
     Active Substance: ALPRAZOLAM
     Dosage: 0.5 MG, 3X/DAY AS NEEDED
  2. ALPRAZOLAM. [Suspect]
     Active Substance: ALPRAZOLAM
     Dosage: 0.5 MG, DAILY AS NEEDED
     Route: 048
     Dates: start: 201810
  3. REXULTI [Concomitant]
     Active Substance: BREXPIPRAZOLE
     Indication: DEPRESSION
     Dosage: 3 MG, DAILY
     Route: 048
     Dates: start: 201809
  4. TEMAZEPAM. [Concomitant]
     Active Substance: TEMAZEPAM
     Dosage: 15 MG, AS NEEDED (TAKEN RARELY)
     Route: 048
     Dates: start: 201809
  5. ALPRAZOLAM. [Suspect]
     Active Substance: ALPRAZOLAM
     Indication: OBSESSIVE-COMPULSIVE DISORDER
     Dosage: 1 MG, 1X/DAY [AT NIGHT]
     Route: 048
     Dates: start: 201810
  6. ALPRAZOLAM. [Suspect]
     Active Substance: ALPRAZOLAM
     Dosage: 0.5 MG, 2X/DAY AS NEEDED (0.5MG 1 TABLET BY MOUTH TWICE A DAY AS NEEDED, TAKES IT MAYBE ONCE A WEEK)
     Route: 048
  7. CLOMIPRAMINE [Concomitant]
     Active Substance: CLOMIPRAMINE
     Indication: DEPRESSION
     Dosage: 125 MG, DAILY
     Route: 048
     Dates: start: 201809
  8. ALPRAZOLAM. [Suspect]
     Active Substance: ALPRAZOLAM
     Dosage: 1 MG, 1X/DAY
     Dates: start: 201809
  9. ALPRAZOLAM. [Suspect]
     Active Substance: ALPRAZOLAM
     Indication: ANXIETY
     Dosage: UNK
  10. ALPRAZOLAM. [Suspect]
     Active Substance: ALPRAZOLAM
     Dosage: 1 MG, 1X/DAY
     Dates: start: 201809
  11. ALPRAZOLAM. [Suspect]
     Active Substance: ALPRAZOLAM
     Dosage: 1.5 MG, 1X/DAY AT NIGHT
     Route: 048
     Dates: start: 201810
  12. ALPRAZOLAM. [Suspect]
     Active Substance: ALPRAZOLAM
     Indication: ANXIETY
     Dosage: 0.5 MG, UNK
  13. MIRTAZAPINE. [Concomitant]
     Active Substance: MIRTAZAPINE
     Dosage: 15 MG, 1X/DAY AT BEDTIME
     Route: 048
     Dates: start: 201809
  14. ALPRAZOLAM. [Suspect]
     Active Substance: ALPRAZOLAM
     Indication: GENERALISED ANXIETY DISORDER
     Dosage: 0.5 MG, 1X/DAY
     Route: 048
     Dates: start: 201810
  15. LAMOTRIGINE. [Concomitant]
     Active Substance: LAMOTRIGINE
     Indication: DEPRESSION
     Dosage: 250 NG, 1X/DAY
     Route: 048
     Dates: start: 201809
  16. ALPRAZOLAM. [Suspect]
     Active Substance: ALPRAZOLAM
     Dosage: 0.5 MG, 1X/DAY
     Dates: start: 201809
  17. LAMOTRIGINE. [Concomitant]
     Active Substance: LAMOTRIGINE
     Dosage: 200 MG, DAILY
     Route: 048

REACTIONS (10)
  - Sedation [Not Recovered/Not Resolved]
  - Confusional state [Recovering/Resolving]
  - Dementia [Unknown]
  - Tremor [Recovering/Resolving]
  - Memory impairment [Recovering/Resolving]
  - Dry mouth [Not Recovered/Not Resolved]
  - Impaired driving ability [Recovered/Resolved]
  - Balance disorder [Recovering/Resolving]
  - Condition aggravated [Recovered/Resolved]
  - Motor dysfunction [Recovered/Resolved]

NARRATIVE: CASE EVENT DATE: 201901
